FAERS Safety Report 9919949 (Version 2)
Quarter: 2014Q1

REPORT INFORMATION
  Report Type: Spontaneous
  Country: DK (occurrence: DK)
  Receive Date: 20140224
  Receipt Date: 20140321
  Transmission Date: 20141002
  Serious: Yes (Death, Other)
  Sender: FDA-Public Use
  Company Number: PHHY2014DK021967

PATIENT
  Age: 78 Year
  Sex: Male

DRUGS (2)
  1. TERBINAFINE [Suspect]
  2. LANSOPRAZOLE [Suspect]
     Dosage: UNK

REACTIONS (3)
  - Death [Fatal]
  - Subacute cutaneous lupus erythematosus [Unknown]
  - Erythema multiforme [Unknown]
